FAERS Safety Report 15722583 (Version 1)
Quarter: 2018Q4

REPORT INFORMATION
  Report Type: Spontaneous
  Country: RO (occurrence: RO)
  Receive Date: 20181214
  Receipt Date: 20181214
  Transmission Date: 20190205
  Serious: Yes (Other)
  Sender: FDA-Public Use
  Company Number: RO-ROCHE-2228042

PATIENT
  Sex: Male

DRUGS (2)
  1. AVASTIN [Suspect]
     Active Substance: BEVACIZUMAB
     Indication: LUNG NEOPLASM MALIGNANT
     Route: 065
     Dates: start: 201607, end: 201811
  2. OPDIVO [Concomitant]
     Active Substance: NIVOLUMAB
     Route: 065

REACTIONS (4)
  - Pain [Unknown]
  - Vertigo positional [Recovered/Resolved]
  - Atrial fibrillation [Unknown]
  - Orthostatic hypotension [Unknown]

NARRATIVE: CASE EVENT DATE: 2018
